FAERS Safety Report 16114261 (Version 1)
Quarter: 2019Q1

REPORT INFORMATION
  Report Type: Spontaneous
  Country: US (occurrence: US)
  Receive Date: 20190325
  Receipt Date: 20190325
  Transmission Date: 20190418
  Serious: No
  Sender: FDA-Public Use
  Company Number: US-ALLERGAN-1902298US

PATIENT
  Age: 61 Year
  Sex: Female

DRUGS (1)
  1. LATISSE [Suspect]
     Active Substance: BIMATOPROST
     Indication: GROWTH OF EYELASHES
     Dosage: EVERY NIGHT, EVERY OTHER NIGHT, EVERY 3 NIGHTS
     Route: 061

REACTIONS (3)
  - Inappropriate schedule of product administration [Unknown]
  - Wrong technique in product usage process [Unknown]
  - Drug ineffective [Unknown]

NARRATIVE: CASE EVENT DATE: 2018
